FAERS Safety Report 12469634 (Version 1)
Quarter: 2016Q2

REPORT INFORMATION
  Report Type: Spontaneous
  Country: US (occurrence: US)
  Receive Date: 20160615
  Receipt Date: 20160615
  Transmission Date: 20160815
  Serious: No
  Sender: FDA-Public Use
  Company Number: US-ELI_LILLY_AND_COMPANY-US201606001785

PATIENT
  Sex: Male

DRUGS (4)
  1. HUMULIN R [Suspect]
     Active Substance: INSULIN HUMAN
     Dosage: 10 U, AT DINNER
     Route: 065
     Dates: start: 2013
  2. HUMULIN R [Suspect]
     Active Substance: INSULIN HUMAN
     Indication: DIABETES MELLITUS
     Dosage: 6 U, EACH MORNING
     Route: 065
     Dates: start: 2013
  3. HUMULIN N [Suspect]
     Active Substance: INSULIN HUMAN
     Indication: DIABETES MELLITUS
     Dosage: 44 U, EACH MORNING
     Route: 065
     Dates: start: 2013
  4. HUMULIN N [Suspect]
     Active Substance: INSULIN HUMAN
     Dosage: 30 U, AT BEDTIME
     Route: 065
     Dates: start: 2013

REACTIONS (4)
  - Feeling abnormal [Unknown]
  - Blood glucose [Unknown]
  - Blood glucose increased [Unknown]
  - Malaise [Unknown]
